FAERS Safety Report 7548832-5 (Version None)
Quarter: 2011Q2

REPORT INFORMATION
  Report Type: 
  Country: None (occurrence: None)
  Receive Date: 20110615
  Receipt Date: 20081115
  Transmission Date: 20111010
  Serious: Yes (Other)
  Sender: FDA-Public Use
  Company Number: US-BAYER-200838755NA

PATIENT
  Age: 39 Year
  Sex: Male
  Weight: 78 kg

DRUGS (8)
  1. HEPARIN [Concomitant]
     Dosage: 37,000 UNITS
     Route: 042
     Dates: start: 19990527, end: 19990527
  2. NITROGLYCERIN [Concomitant]
     Dosage: 1/150MCG
     Route: 048
  3. TRASYLOL [Suspect]
     Indication: ATRIAL SEPTAL DEFECT REPAIR
     Dosage: 200ML LOADING DOSE
     Route: 042
     Dates: start: 19990527, end: 19990527
  4. VERSED [Concomitant]
     Dosage: 10MG
     Route: 042
     Dates: start: 19990527, end: 19990527
  5. ACETYLSALICYLIC ACID SRT [Concomitant]
     Dosage: 1 TABLET
     Route: 048
  6. TRASYLOL [Suspect]
     Indication: ANOMALOUS PULMONARY VENOUS CONNECTION
  7. TRASYLOL [Suspect]
     Indication: PULMONARY VALVE REPLACEMENT
  8. ZEMURON [Concomitant]
     Dosage: 100MG
     Route: 042
     Dates: start: 19990527, end: 19990527

REACTIONS (6)
  - RENAL FAILURE [None]
  - INJURY [None]
  - PAIN [None]
  - UNEVALUABLE EVENT [None]
  - RENAL FAILURE ACUTE [None]
  - CARDIAC DISORDER [None]
